FAERS Safety Report 13214251 (Version 4)
Quarter: 2017Q2

REPORT INFORMATION
  Report Type: Report from Study
  Country: US (occurrence: US)
  Receive Date: 20170210
  Receipt Date: 20170516
  Transmission Date: 20170830
  Serious: Yes (Hospitalization)
  Sender: FDA-Public Use
  Company Number: US-ROCHE-1891552

PATIENT
  Age: 58 Year
  Sex: Female
  Weight: 58.3 kg

DRUGS (16)
  1. ATEZOLIZUMAB [Suspect]
     Active Substance: ATEZOLIZUMAB
     Indication: NON-SMALL CELL LUNG CANCER STAGE IV
     Dosage: DATE OF THE MOST RECENT DOSE PRIOR TO THE EVENT ONSET: 28/DEC/2016
     Route: 042
     Dates: start: 20160908
  2. TYLENOL [Concomitant]
     Active Substance: ACETAMINOPHEN
     Indication: PYREXIA
  3. PEMETREXED. [Suspect]
     Active Substance: PEMETREXED
     Indication: NON-SMALL CELL LUNG CANCER STAGE IV
     Dosage: DATE OF THE MOST RECENT DOSE PRIOR TO THE EVENT ONSET: 28/DEC/2016 OF 840 MG?DOSE PER PROTOCOL
     Route: 042
     Dates: start: 20160908
  4. UNASYN [Concomitant]
     Active Substance: AMPICILLIN SODIUM\SULBACTAM SODIUM
     Route: 065
     Dates: start: 20170112, end: 20170112
  5. AUGMENTIN [Concomitant]
     Active Substance: AMOXICILLIN\CLAVULANATE POTASSIUM
     Dosage: COMPLETED 9 OF 10 DAYS
     Route: 065
     Dates: start: 20170112, end: 20170120
  6. AMLODIPINE [Concomitant]
     Active Substance: AMLODIPINE BESYLATE
     Indication: HYPERTENSION
  7. ESCITALOPRAM [Concomitant]
     Active Substance: ESCITALOPRAM OXALATE
     Indication: ANXIETY
  8. LIDOCAINE. [Concomitant]
     Active Substance: LIDOCAINE
     Indication: STOMATITIS
     Dosage: MOUTH WASH
     Route: 065
     Dates: start: 201610
  9. LORAZEPAM. [Concomitant]
     Active Substance: LORAZEPAM
     Indication: ANXIETY
  10. OMEPRAZOLE. [Concomitant]
     Active Substance: OMEPRAZOLE
     Indication: GASTROOESOPHAGEAL REFLUX DISEASE
     Route: 065
     Dates: start: 201304
  11. CARBOPLATIN. [Suspect]
     Active Substance: CARBOPLATIN
     Indication: NON-SMALL CELL LUNG CANCER STAGE IV
     Dosage: DATE OF THE MOST RECENT DOSE PRIOR TO THE EVENT ONSET: 16/NOV/2016 OF 592.2 UNIT?TO ACHIEVE TARGET A
     Route: 042
     Dates: start: 20160908
  12. ONDANSETRON [Concomitant]
     Active Substance: ONDANSETRON
     Indication: NAUSEA
     Route: 065
     Dates: start: 20161021
  13. NORCO [Concomitant]
     Active Substance: ACETAMINOPHEN\HYDROCODONE BITARTRATE
     Indication: PAIN
     Route: 065
     Dates: start: 20160829
  14. LIDOCAINE. [Concomitant]
     Active Substance: LIDOCAINE
     Indication: CHEILOSIS
  15. AZITHROMYCIN ANHYDROUS. [Concomitant]
     Active Substance: AZITHROMYCIN ANHYDROUS
     Dosage: COMPLETED 5 DAYS
     Route: 065
     Dates: start: 20170112, end: 20170116
  16. OXYGEN PER NASAL CANNULA [Concomitant]
     Route: 065
     Dates: start: 20170118

REACTIONS (2)
  - Pneumonitis [Not Recovered/Not Resolved]
  - Hepatotoxicity [Not Recovered/Not Resolved]

NARRATIVE: CASE EVENT DATE: 20170122
